FAERS Safety Report 13806603 (Version 3)
Quarter: 2017Q3

REPORT INFORMATION
  Report Type: Spontaneous
  Country: IT (occurrence: IT)
  Receive Date: 20170728
  Receipt Date: 20170824
  Transmission Date: 20171127
  Serious: Yes (Other)
  Sender: FDA-Public Use
  Company Number: IT-GLAXOSMITHKLINE-IT2017GSK116465

PATIENT
  Age: 82 Year
  Sex: Male

DRUGS (7)
  1. ENANTONE LP [Concomitant]
     Active Substance: LEUPROLIDE ACETATE
  2. DICLOFENAC [Suspect]
     Active Substance: DICLOFENAC
     Indication: PAIN IN EXTREMITY
     Dosage: 4 DF, 4 POSOLOGIC UNIT TOTAL
     Route: 048
     Dates: start: 20170519, end: 20170521
  3. LASIX [Concomitant]
     Active Substance: FUROSEMIDE
  4. BISOPROLOL [Concomitant]
     Active Substance: BISOPROLOL
  5. PLAUNAZIDE [Concomitant]
     Active Substance: HYDROCHLOROTHIAZIDE\OLMESARTAN MEDOXOMIL
  6. LANOXIN [Concomitant]
     Active Substance: DIGOXIN
  7. COUMADIN [Suspect]
     Active Substance: WARFARIN SODIUM
     Indication: ATRIAL FIBRILLATION
     Dosage: 1 DF, PRN
     Route: 048
     Dates: start: 20170101, end: 20170521

REACTIONS (5)
  - Strangury [Recovering/Resolving]
  - Accidental overdose [Recovering/Resolving]
  - Drug interaction [Unknown]
  - Melaena [Recovering/Resolving]
  - Abdominal pain [Recovering/Resolving]

NARRATIVE: CASE EVENT DATE: 20170521
